FAERS Safety Report 15693464 (Version 2)
Quarter: 2018Q4

REPORT INFORMATION
  Report Type: Spontaneous
  Country: DE (occurrence: DE)
  Receive Date: 20181206
  Receipt Date: 20181224
  Transmission Date: 20190205
  Serious: Yes (Hospitalization)
  Sender: FDA-Public Use
  Company Number: DE-AUROBINDO-AUR-APL-2018-058828

PATIENT
  Age: 79 Year
  Sex: Male
  Weight: 80.7 kg

DRUGS (10)
  1. DUODOPA [Suspect]
     Active Substance: CARBIDOPA\LEVODOPA
     Indication: PARKINSON^S DISEASE
     Dosage: ED 1.5 ML, MD 9 ML, CRD NOT REPORTED
     Route: 065
     Dates: start: 20180410
  2. AMLODIPINE [Suspect]
     Active Substance: AMLODIPINE BESYLATE
     Indication: HYPERTENSION
     Dosage: 2.5 MILLIGRAM, DAILY
     Route: 048
     Dates: start: 201808
  3. HUMALOG [Suspect]
     Active Substance: INSULIN LISPRO
     Indication: DIABETES MELLITUS
     Dosage: UNK, AS NEEDED
     Route: 048
     Dates: start: 2017
  4. DUODOPA [Suspect]
     Active Substance: CARBIDOPA\LEVODOPA
     Dosage: MD 10 ML
     Route: 065
     Dates: start: 20181018
  5. ASS TABLET [Suspect]
     Active Substance: ASPIRIN
     Indication: THROMBOSIS PROPHYLAXIS
     Dosage: 100 MILLIGRAM, DAILY
     Route: 048
     Dates: start: 2017
  6. DUODOPA [Suspect]
     Active Substance: CARBIDOPA\LEVODOPA
     Dosage: ED 1.5 ML
     Route: 065
     Dates: start: 20181016
  7. DUODOPA [Suspect]
     Active Substance: CARBIDOPA\LEVODOPA
     Dosage: ED 1.5 ML, MD 9 ML, CRD 2.7 ML/H
     Route: 065
     Dates: start: 20181115
  8. DUODOPA [Suspect]
     Active Substance: CARBIDOPA\LEVODOPA
     Dosage: ED 1.5 ML, MD 10 ML, CRD 2.7 ML/H
     Route: 065
     Dates: start: 20181118
  9. DUODOPA [Suspect]
     Active Substance: CARBIDOPA\LEVODOPA
     Dosage: CRD 3.3 ML/H
     Route: 065
     Dates: start: 20181128
  10. MADOPAR [Concomitant]
     Active Substance: BENSERAZIDE HYDROCHLORIDE\LEVODOPA
     Indication: PARKINSON^S DISEASE
     Dosage: 200 MILLIGRAM, DAILY
     Route: 048
     Dates: start: 20180410, end: 20181116

REACTIONS (2)
  - Arthralgia [Unknown]
  - Stoma site infection [Recovered/Resolved]

NARRATIVE: CASE EVENT DATE: 20180615
